FAERS Safety Report 10399557 (Version 4)
Quarter: 2015Q1

REPORT INFORMATION
  Report Type: Spontaneous
  Country: US (occurrence: US)
  Receive Date: 20140821
  Receipt Date: 20150127
  Transmission Date: 20150720
  Serious: Yes (Life-Threatening, Hospitalization, Other)
  Sender: FDA-Public Use
  Company Number: US-BAYER-2014-124726

PATIENT
  Age: 23 Year
  Sex: Female
  Weight: 100 kg

DRUGS (8)
  1. MIRENA [Suspect]
     Active Substance: LEVONORGESTREL
     Indication: MENORRHAGIA
  2. MIRENA [Suspect]
     Active Substance: LEVONORGESTREL
     Indication: CONTRACEPTION
     Dosage: 20 MCG/24HR, CONT
     Route: 015
     Dates: start: 200603, end: 20110919
  3. XANAX [Concomitant]
     Active Substance: ALPRAZOLAM
     Indication: ANXIETY
     Dosage: UNK
     Dates: start: 2001, end: 2014
  4. NORFLEX [Concomitant]
     Active Substance: ORPHENADRINE CITRATE
     Dosage: UNK
     Dates: start: 2011, end: 2014
  5. ZOLOFT [Concomitant]
     Active Substance: SERTRALINE HYDROCHLORIDE
     Indication: SOCIAL PHOBIA
     Dosage: UNK
     Dates: start: 2001, end: 2014
  6. XANAX [Concomitant]
     Active Substance: ALPRAZOLAM
     Indication: PANIC ATTACK
  7. TRAMADOL [Concomitant]
     Active Substance: TRAMADOL
     Indication: DYSMENORRHOEA
     Dosage: UNK
     Dates: start: 2011, end: 2014
  8. TRAMADOL [Concomitant]
     Active Substance: TRAMADOL
     Indication: HEADACHE

REACTIONS (14)
  - Depression [None]
  - Device issue [None]
  - Abdominal pain [None]
  - General physical health deterioration [None]
  - Anhedonia [None]
  - Emotional distress [None]
  - Infertility female [None]
  - Urinary incontinence [None]
  - Uterine perforation [None]
  - Anxiety [None]
  - Infection [None]
  - Injury [None]
  - Device misuse [None]
  - Scar [None]

NARRATIVE: CASE EVENT DATE: 2007
